FAERS Safety Report 4581818-1 (Version None)
Quarter: 2005Q1

REPORT INFORMATION
  Report Type: 
  Country: None (occurrence: None)
  Receive Date: 20050214
  Receipt Date: 20040311
  Transmission Date: 20050727
  Serious: No
  Sender: FDA-Public Use
  Company Number: US-GLAXOSMITHKLINE-A0502355A

PATIENT
  Age: 59 Year
  Sex: Female

DRUGS (9)
  1. LAMICTAL [Suspect]
     Indication: ILL-DEFINED DISORDER
     Dosage: 25MG PER DAY
     Route: 048
     Dates: start: 20040227, end: 20040307
  2. LIDODERM PATCH [Concomitant]
  3. TAMOXIFEN CITRATE [Concomitant]
  4. PERCOCET [Concomitant]
  5. OXYCONTIN [Concomitant]
  6. ATENOLOL [Concomitant]
  7. HYDROCHLOROTHIAZIDE [Concomitant]
  8. PAXIL [Concomitant]
  9. IBU [Concomitant]

REACTIONS (1)
  - ARTHRALGIA [None]
